FAERS Safety Report 5504735-9 (Version None)
Quarter: 2007Q4

REPORT INFORMATION
  Report Type: 
  Country: None (occurrence: None)
  Receive Date: 20071031
  Receipt Date: 20061018
  Transmission Date: 20080405
  Serious: Yes (Death)
  Sender: FDA-Public Use
  Company Number: 2006VX002009

PATIENT
  Age: 50 Year
  Sex: Female

DRUGS (1)
  1. LIBRAX [Suspect]
     Dosage: ; PO
     Route: 048

REACTIONS (1)
  - ACCIDENTAL OVERDOSE [None]
